FAERS Safety Report 5620837-0 (Version None)
Quarter: 2008Q1

REPORT INFORMATION
  Report Type: 
  Country: None (occurrence: None)
  Receive Date: 20080208
  Receipt Date: 20080130
  Transmission Date: 20080703
  Serious: Yes (Death)
  Sender: FDA-Public Use
  Company Number: DE-PFIZER INC-2008009799

PATIENT
  Sex: Female
  Weight: 89 kg

DRUGS (2)
  1. EPIRUBICIN HYDROCHLORIDE [Suspect]
     Indication: BREAST CANCER
     Dosage: DAILY DOSE:178MG
     Route: 042
     Dates: start: 20010521, end: 20010723
  2. TAMOXIFEN [Concomitant]
     Route: 048

REACTIONS (1)
  - DEATH [None]
